FAERS Safety Report 22639843 (Version 5)
Quarter: 2023Q4

REPORT INFORMATION
  Report Type: Spontaneous
  Country: IT (occurrence: IT)
  Receive Date: 20230626
  Receipt Date: 20231207
  Transmission Date: 20240110
  Serious: Yes (Hospitalization, Other)
  Sender: FDA-Public Use
  Company Number: IT-UCBSA-2023028465

PATIENT
  Age: 27 Year
  Sex: Female
  Weight: 144 kg

DRUGS (15)
  1. LEVETIRACETAM [Suspect]
     Active Substance: LEVETIRACETAM
     Indication: Epilepsy
     Dosage: 3500 MILLIGRAM, QD
     Route: 065
     Dates: start: 2022
  2. LEVETIRACETAM [Suspect]
     Active Substance: LEVETIRACETAM
     Dosage: 2500 MILLIGRAM, QD, REDUCED
     Route: 065
     Dates: start: 2022
  3. LACOSAMIDE [Suspect]
     Active Substance: LACOSAMIDE
     Indication: Epilepsy
     Dosage: 200 MILLIGRAM, QD
     Route: 065
  4. LORAZEPAM [Suspect]
     Active Substance: LORAZEPAM
     Indication: Epilepsy
     Dosage: 4 MILLIGRAM
     Route: 065
     Dates: start: 2022
  5. LORAZEPAM [Suspect]
     Active Substance: LORAZEPAM
     Indication: Status epilepticus
  6. DESMOPRESSIN [Suspect]
     Active Substance: DESMOPRESSIN
     Indication: Diabetes insipidus
     Dosage: 180 MICROGRAM, QD
     Route: 065
  7. PERAMPANEL [Suspect]
     Active Substance: PERAMPANEL
     Indication: Epilepsy
     Dosage: 8 MILLIGRAM, QD
     Route: 065
  8. PERAMPANEL [Suspect]
     Active Substance: PERAMPANEL
     Dosage: 16 MILLIGRAM, QD, INCREASED
     Route: 065
     Dates: start: 2022
  9. CLONAZEPAM [Suspect]
     Active Substance: CLONAZEPAM
     Indication: Epilepsy
     Dosage: UNK
     Route: 065
     Dates: start: 2022
  10. VALPROATE SODIUM [Suspect]
     Active Substance: VALPROATE SODIUM
     Indication: Epilepsy
     Dosage: 750 MILLIGRAM, QD
     Route: 065
  11. LAMOTRIGINE [Suspect]
     Active Substance: LAMOTRIGINE
     Indication: Epilepsy
     Dosage: UNK
     Route: 065
     Dates: start: 2022, end: 20220523
  12. LEVOTHYROXINE [Suspect]
     Active Substance: LEVOTHYROXINE
     Indication: Hypopituitarism
     Dosage: 200 MICROGRAM, QD
     Route: 065
  13. CORTISONE ACETATE [Suspect]
     Active Substance: CORTISONE ACETATE
     Indication: Hypopituitarism
     Dosage: 50 MILLIGRAM, QD, INCREASED
     Route: 065
     Dates: start: 2022
  14. CORTISONE ACETATE [Suspect]
     Active Substance: CORTISONE ACETATE
     Dosage: 31.25 MILLIGRAM, QD
     Route: 065
     Dates: start: 2022
  15. SOMATROPIN [Suspect]
     Active Substance: SOMATROPIN
     Indication: Hypopituitarism
     Dosage: 0.4 MILLIGRAM, QD (5 DAYS PER WEEK)
     Route: 065

REACTIONS (9)
  - Cerebral salt-wasting syndrome [Unknown]
  - Hypernatraemia [Recovered/Resolved]
  - Urine output increased [Recovered/Resolved]
  - Seizure [Unknown]
  - Product dose omission issue [Recovered/Resolved]
  - Multiple-drug resistance [Unknown]
  - Somnolence [Recovered/Resolved]
  - Drug ineffective [Unknown]
  - Off label use [Unknown]

NARRATIVE: CASE EVENT DATE: 20220101
